FAERS Safety Report 9988067 (Version 1)
Quarter: 2014Q1

REPORT INFORMATION
  Report Type: Report from Study
  Country: US (occurrence: US)
  Receive Date: 20140308
  Receipt Date: 20140308
  Transmission Date: 20141002
  Serious: Yes (Other)
  Sender: FDA-Public Use
  Company Number: US-ROCHE-1350617

PATIENT
  Sex: Male

DRUGS (1)
  1. AVASTIN [Suspect]
     Indication: MACULAR DEGENERATION
     Route: 065

REACTIONS (9)
  - Cystoid macular oedema [Unknown]
  - Metamorphopsia [Unknown]
  - Vision blurred [Unknown]
  - Vitreous floaters [Unknown]
  - Detachment of retinal pigment epithelium [Unknown]
  - Macular fibrosis [Unknown]
  - Vitreous detachment [Unknown]
  - Macular degeneration [Unknown]
  - Off label use [Unknown]
